FAERS Safety Report 4798998-5 (Version None)
Quarter: 2005Q4

REPORT INFORMATION
  Report Type: 
  Country: None (occurrence: None)
  Receive Date: 20051013
  Receipt Date: 20050922
  Transmission Date: 20060501
  Serious: Yes (Hospitalization, Other)
  Sender: FDA-Public Use
  Company Number: 430012M05DEU

PATIENT
  Age: 55 Year
  Sex: Female

DRUGS (1)
  1. MITOXANTRONE [Suspect]
     Indication: SECONDARY PROGRESSIVE MULTIPLE SCLEROSIS
     Dosage: SEE IMAGE
     Dates: start: 20040201, end: 20040401

REACTIONS (3)
  - BONE GIANT CELL TUMOUR [None]
  - METASTASES TO LUNG [None]
  - SYNOVIAL SARCOMA METASTATIC [None]
